FAERS Safety Report 8312633-0 (Version None)
Quarter: 2012Q2

REPORT INFORMATION
  Report Type: 
  Country: None (occurrence: None)
  Receive Date: 20120424
  Receipt Date: 20120416
  Transmission Date: 20120825
  Serious: Yes (Other)
  Sender: FDA-Public Use
  Company Number: ACO_30052_2012

PATIENT
  Age: 57 Year
  Sex: Female
  Weight: 68 kg

DRUGS (8)
  1. BACLOFEN [Concomitant]
  2. NEURONTIN [Concomitant]
  3. SPIRONOLACTONE [Concomitant]
  4. HYDROCHLOROTHIAZIDE [Concomitant]
  5. ASCORBIC ACID [Concomitant]
  6. AMPYRA [Suspect]
     Indication: GAIT DISTURBANCE
     Dosage: 10 MG, BID, ORAL
     Route: 048
     Dates: start: 20100401
  7. MULTIVITAMIN [Concomitant]
  8. CRESTOR [Concomitant]

REACTIONS (3)
  - URINARY CYSTECTOMY [None]
  - BURNING SENSATION [None]
  - URINARY TRACT INFECTION [None]
